FAERS Safety Report 6099851-X (Version None)
Quarter: 2009Q1

REPORT INFORMATION
  Report Type: 
  Country: None (occurrence: None)
  Receive Date: 20090303
  Receipt Date: 20090224
  Transmission Date: 20090719
  Serious: Yes (Hospitalization, Other)
  Sender: FDA-Public Use
  Company Number: PHHY2009JP03951

PATIENT
  Sex: Female
  Weight: 55 kg

DRUGS (9)
  1. COMTAN [Suspect]
     Indication: DRUG EFFECT DECREASED
     Dosage: 100 MG, TID
     Route: 048
     Dates: start: 20090119, end: 20090202
  2. COMTAN [Suspect]
     Dosage: 150 MG/DAY
     Route: 048
     Dates: start: 20090203
  3. BLOPRESS [Suspect]
     Indication: HYPERTENSION
     Dosage: 4 MG
     Route: 048
     Dates: end: 20090202
  4. MADOPAR [Concomitant]
     Indication: PARKINSON'S DISEASE
     Dosage: 300MG DAILY
     Route: 048
     Dates: start: 20080903
  5. SOLANAX [Concomitant]
     Indication: DEPRESSION
     Dosage: 0.6 MG
     Route: 048
  6. PAXIL [Concomitant]
     Indication: DEPRESSION
     Dosage: 10 MG
     Route: 048
  7. DAONIL [Concomitant]
     Indication: DIABETES MELLITUS
     Dosage: 1.25 MG
     Route: 048
  8. LENDORMIN [Concomitant]
     Indication: INSOMNIA
     Dosage: 0.25 MG
     Route: 048
  9. MAGNESIUM OXIDE [Concomitant]
     Indication: CONSTIPATION
     Dosage: 1.5 G
     Route: 048

REACTIONS (7)
  - BLOOD PRESSURE DECREASED [None]
  - CONCOMITANT DISEASE PROGRESSION [None]
  - DEPRESSION [None]
  - DIZZINESS [None]
  - FALL [None]
  - NAUSEA [None]
  - RETCHING [None]
